FAERS Safety Report 9494432 (Version 1)
Quarter: 2013Q3

REPORT INFORMATION
  Report Type: Spontaneous
  Country: US (occurrence: None)
  Receive Date: 20130828
  Receipt Date: 20130828
  Transmission Date: 20140515
  Serious: Yes (Death, Other)
  Sender: FDA-Public Use
  Company Number: FK201303582

PATIENT
  Sex: Male

DRUGS (3)
  1. HEPARIN [Suspect]
     Indication: DEEP VEIN THROMBOSIS
     Dosage: 8000 IU, BOLUS, INTRAVENOUS BOLUS
     Route: 040
  2. BIVALIRUDIN (BIVALIRUDIN) [Concomitant]
  3. ENOXAPARIN SODIUM (ENOXAPARIN SODIUM) [Concomitant]

REACTIONS (6)
  - Anaphylactoid reaction [None]
  - Heparin-induced thrombocytopenia [None]
  - Injection site erythema [None]
  - Ventricular tachycardia [None]
  - Cardiac arrest [None]
  - Bundle branch block right [None]
